FAERS Safety Report 4293922-6 (Version None)
Quarter: 2004Q1

REPORT INFORMATION
  Report Type: 
  Country: None (occurrence: None)
  Receive Date: 20040211
  Receipt Date: 20040122
  Transmission Date: 20041129
  Serious: Yes (Other)
  Sender: FDA-Public Use
  Company Number: USA031049685

PATIENT
  Age: 74 Year
  Sex: Female

DRUGS (2)
  1. FORTEO [Suspect]
     Indication: OSTEOPOROSIS
     Dosage: 20 UG/DAY
     Dates: start: 20030917, end: 20031130
  2. CALCIUM [Concomitant]

REACTIONS (3)
  - BLOOD CALCIUM INCREASED [None]
  - BONE PAIN [None]
  - HEADACHE [None]
